FAERS Safety Report 5087202-9 (Version None)
Quarter: 2006Q3

REPORT INFORMATION
  Report Type: 
  Country: None (occurrence: None)
  Receive Date: 20060821
  Receipt Date: 20060808
  Transmission Date: 20061208
  Serious: Yes (Hospitalization)
  Sender: FDA-Public Use
  Company Number: CIP06001870

PATIENT
  Age: 74 Year
  Sex: Female
  Weight: 78 kg

DRUGS (1)
  1. ACTONEL [Suspect]
     Indication: OSTEOPOROSIS
     Dosage: 35 MG ONCE WEEKLY, ORAL
     Route: 048
     Dates: start: 20060801, end: 20060801

REACTIONS (7)
  - BACK PAIN [None]
  - BEDRIDDEN [None]
  - BONE PAIN [None]
  - CHEST PAIN [None]
  - HYPOAESTHESIA [None]
  - MYALGIA [None]
  - RESPIRATORY DISTRESS [None]
